FAERS Safety Report 4701442-7 (Version None)
Quarter: 2005Q2

REPORT INFORMATION
  Report Type: 
  Country: None (occurrence: None)
  Receive Date: 20050627
  Receipt Date: 20050614
  Transmission Date: 20051028
  Serious: Yes (Death)
  Sender: FDA-Public Use
  Company Number: OMPQ-NO-0506S-0855

PATIENT
  Age: 32 Year
  Sex: Female
  Weight: 53 kg

DRUGS (3)
  1. OMNIPAQUE 140 [Suspect]
     Dosage: 100 ML, SINGLE DOSE, I.V.
     Route: 042
     Dates: start: 20050608, end: 20050608
  2. OMNIPAQUE 140 [Suspect]
  3. LIDOCAINE [Concomitant]

REACTIONS (9)
  - ANAPHYLACTIC SHOCK [None]
  - CHEST PAIN [None]
  - COLD SWEAT [None]
  - DRUG EXPOSURE DURING PREGNANCY [None]
  - HYPOAESTHESIA [None]
  - HYPOTENSION [None]
  - NERVOUSNESS [None]
  - POST PROCEDURAL COMPLICATION [None]
  - RESPIRATORY FAILURE [None]
